FAERS Safety Report 17469133 (Version 3)
Quarter: 2020Q2

REPORT INFORMATION
  Report Type: Spontaneous
  Country: US (occurrence: US)
  Receive Date: 20200227
  Receipt Date: 20200420
  Transmission Date: 20200713
  Serious: No
  Sender: FDA-Public Use
  Company Number: US-SA-2020SA050055

PATIENT
  Age: 44 Year
  Sex: Male

DRUGS (1)
  1. CAPRELSA [Suspect]
     Active Substance: VANDETANIB
     Indication: THYROID CANCER
     Dosage: 300 MG, QD
     Route: 048
     Dates: start: 20200122

REACTIONS (6)
  - Swelling face [Unknown]
  - Lip swelling [Unknown]
  - Rash [Unknown]
  - Blood pressure increased [Unknown]
  - Skin exfoliation [Unknown]
  - Burning sensation [Unknown]
